FAERS Safety Report 7053342-8 (Version None)
Quarter: 2010Q4

REPORT INFORMATION
  Report Type: 
  Country: None (occurrence: None)
  Receive Date: 20101020
  Receipt Date: 20101014
  Transmission Date: 20110411
  Serious: Yes (Hospitalization)
  Sender: FDA-Public Use
  Company Number: FR-MPIJNJ-2010-02160

PATIENT

DRUGS (12)
  1. VELCADE [Suspect]
     Indication: MULTIPLE MYELOMA
     Dosage: 2.08 MG, CYCLIC
     Dates: start: 20081112, end: 20081124
  2. VELCADE [Suspect]
     Dosage: 1.6 MG, UNK
     Dates: start: 20081204, end: 20090205
  3. DEXAMETHASONE [Concomitant]
     Indication: MULTIPLE MYELOMA
     Dosage: 20 MG, UNK
     Route: 048
     Dates: start: 20081112
  4. FENTANYL [Concomitant]
     Dosage: UNK
  5. OXYCODONE HCL [Concomitant]
     Dosage: UNK
     Route: 048
     Dates: end: 20081201
  6. KAYEXALATE [Concomitant]
     Dosage: UNK
     Dates: end: 20081201
  7. AMAREL [Concomitant]
     Dosage: UNK
  8. GRANULOCYTE COLONY STIMULATING FACTOR [Concomitant]
     Dosage: UNK
     Dates: end: 20081201
  9. INEXIUM                            /01479302/ [Concomitant]
     Dosage: UNK
     Dates: end: 20081216
  10. FASTURTEC [Concomitant]
     Dosage: UNK
     Dates: start: 20081110, end: 20081201
  11. FUROSEMIDE [Concomitant]
     Dosage: UNK
     Route: 042
     Dates: start: 20081110, end: 20081201
  12. TRAMADOL HCL [Concomitant]
     Dosage: UNK
     Route: 048
     Dates: start: 20081110, end: 20081201

REACTIONS (1)
  - ESCHERICHIA INFECTION [None]
